FAERS Safety Report 4467587-4 (Version None)
Quarter: 2004Q3

REPORT INFORMATION
  Report Type: 
  Country: None (occurrence: None)
  Receive Date: 20040917
  Receipt Date: 20040525
  Transmission Date: 20050211
  Serious: No
  Sender: FDA-Public Use
  Company Number: US-JNJFOC-20040504703

PATIENT
  Age: 38 Year
  Sex: Female
  Weight: 79.3795 kg

DRUGS (4)
  1. ORTHO EVRA [Suspect]
     Indication: CONTRACEPTION
     Dosage: 1 DOSE(S), 3 IN 4 WEEK, TRANSDERMAL
     Route: 062
     Dates: start: 20040516
  2. ATENOLOL (ATENOLOL) UNSPECIFIED [Concomitant]
  3. IRON (IRON) UNSPECIFIED [Concomitant]
  4. LASIX (FUROSEMIDE) UNSPECIFIED [Concomitant]

REACTIONS (4)
  - HEADACHE [None]
  - NAUSEA [None]
  - PAIN IN EXTREMITY [None]
  - PRURITUS GENERALISED [None]
